FAERS Safety Report 5455078-3 (Version None)
Quarter: 2007Q3

REPORT INFORMATION
  Report Type: 
  Country: None (occurrence: None)
  Receive Date: 20070913
  Receipt Date: 20061204
  Transmission Date: 20080115
  Serious: Yes (Other)
  Sender: FDA-Public Use
  Company Number: 6027906

PATIENT
  Age: 28 Year
  Sex: Male

DRUGS (1)
  1. ACICLOVIR (INTRAVENOUS INFUSION) (ACICLOVIR) [Suspect]
     Dosage: (8,5 MG/KG, 1 IN 8 HR) INTRAVENOUS (NOT OTHERWISE SPECIFIED); (5 MG/KG) INTRAVENOUS
     Route: 042

REACTIONS (1)
  - RENAL FAILURE ACUTE [None]
